FAERS Safety Report 8213705-1 (Version None)
Quarter: 2012Q1

REPORT INFORMATION
  Report Type: 
  Country: None (occurrence: None)
  Receive Date: 20120315
  Receipt Date: 20120306
  Transmission Date: 20120608
  Serious: Yes (Other)
  Sender: FDA-Public Use
  Company Number: US-ASTRAZENECA-2011SE03168

PATIENT
  Age: 45 Year
  Sex: Female

DRUGS (11)
  1. PULMICORT FLEXHALER [Suspect]
     Route: 055
  2. NEXIUM [Suspect]
     Route: 048
  3. SEROQUEL [Suspect]
     Indication: BIPOLAR I DISORDER
     Route: 048
  4. SEROQUEL [Suspect]
     Indication: BIPOLAR DISORDER
     Route: 048
  5. ZOMIG [Suspect]
     Route: 048
  6. CODEINE [Concomitant]
  7. MORPHINE [Concomitant]
  8. SYMBICORT [Suspect]
     Route: 055
  9. ADVAIR DISKUS 100/50 [Concomitant]
  10. RHINOCORT [Suspect]
     Route: 045
  11. PEPCID [Concomitant]

REACTIONS (17)
  - PULMONARY EMBOLISM [None]
  - BIPOLAR DISORDER [None]
  - WEIGHT DECREASED [None]
  - DYSPNOEA [None]
  - TREMOR [None]
  - PANIC ATTACK [None]
  - PERIPHERAL EMBOLISM [None]
  - MALAISE [None]
  - OEDEMA PERIPHERAL [None]
  - CHRONIC OBSTRUCTIVE PULMONARY DISEASE [None]
  - HALLUCINATION, AUDITORY [None]
  - MEMORY IMPAIRMENT [None]
  - DEPRESSION [None]
  - DRUG DOSE OMISSION [None]
  - INSOMNIA [None]
  - WRONG DRUG ADMINISTERED [None]
  - FEAR [None]
